FAERS Safety Report 24785386 (Version 1)
Quarter: 2024Q4

REPORT INFORMATION
  Report Type: Spontaneous
  Country: ES (occurrence: ES)
  Receive Date: 20241228
  Receipt Date: 20241228
  Transmission Date: 20250115
  Serious: Yes (Other)
  Sender: TEVA
  Company Number: None

PATIENT
  Age: 66 Year
  Sex: Male
  Weight: 90 kg

DRUGS (1)
  1. AJOVY [Suspect]
     Active Substance: FREMANEZUMAB-VFRM
     Indication: Migraine
     Dosage: 1 PRE-FILLED PEN
     Route: 058
     Dates: start: 20241105, end: 20241105

REACTIONS (3)
  - Vertigo [Recovered/Resolved]
  - Dizziness [Recovered/Resolved]
  - Walking disability [Recovered/Resolved]

NARRATIVE: CASE EVENT DATE: 20241105
